FAERS Safety Report 8282182-7 (Version None)
Quarter: 2012Q2

REPORT INFORMATION
  Report Type: 
  Country: None (occurrence: None)
  Receive Date: 20120413
  Receipt Date: 20120409
  Transmission Date: 20120825
  Serious: Yes (Other)
  Sender: FDA-Public Use
  Company Number: PHEH2012US006357

PATIENT
  Sex: Female

DRUGS (1)
  1. GILENYA [Suspect]
     Indication: MULTIPLE SCLEROSIS
     Route: 048

REACTIONS (21)
  - CONTUSION [None]
  - UPPER LIMB FRACTURE [None]
  - CONCUSSION [None]
  - ASTHENIA [None]
  - RIB FRACTURE [None]
  - LOWER LIMB FRACTURE [None]
  - FALL [None]
  - HAEMORRHAGE [None]
  - FOOT FRACTURE [None]
  - BLADDER DYSFUNCTION [None]
  - SCAR [None]
  - PROGRESSIVE MULTIPLE SCLEROSIS [None]
  - GAIT DISTURBANCE [None]
  - BALANCE DISORDER [None]
  - OPTIC NEURITIS [None]
  - BLINDNESS UNILATERAL [None]
  - AGEUSIA [None]
  - FATIGUE [None]
  - SPINAL FRACTURE [None]
  - COGNITIVE DISORDER [None]
  - FUNCTIONAL GASTROINTESTINAL DISORDER [None]
